FAERS Safety Report 11268193 (Version 3)
Quarter: 2015Q4

REPORT INFORMATION
  Report Type: Spontaneous
  Country: US (occurrence: US)
  Receive Date: 20150714
  Receipt Date: 20151009
  Transmission Date: 20160304
  Serious: No
  Sender: FDA-Public Use
  Company Number: US-AMGEN-USASP2015068620

PATIENT
  Age: 56 Year
  Sex: Female

DRUGS (1)
  1. ENBREL [Suspect]
     Active Substance: ETANERCEPT
     Indication: PRODUCT USED FOR UNKNOWN INDICATION
     Dosage: 50 MG/ML, WEEKLY
     Route: 058

REACTIONS (5)
  - Erythema [Unknown]
  - Therapeutic response decreased [Unknown]
  - Device failure [Unknown]
  - Condition aggravated [Unknown]
  - Urticaria [Unknown]

NARRATIVE: CASE EVENT DATE: 20150930
